FAERS Safety Report 21379267 (Version 1)
Quarter: 2022Q3

REPORT INFORMATION
  Report Type: Spontaneous
  Country: CN (occurrence: CN)
  Receive Date: 20220927
  Receipt Date: 20220927
  Transmission Date: 20221026
  Serious: Yes (Other)
  Sender: FDA-Public Use
  Company Number: None

PATIENT
  Age: 62 Year
  Sex: Female
  Weight: 60 kg

DRUGS (4)
  1. CYCLOPHOSPHAMIDE [Suspect]
     Active Substance: CYCLOPHOSPHAMIDE
     Indication: Breast cancer female
     Dosage: 800 MG, QD, DILUTED WITH 0.9% SODIUM CHLORIDE INJECTION 100 ML
     Route: 041
     Dates: start: 20220915, end: 20220915
  2. SODIUM CHLORIDE [Suspect]
     Active Substance: SODIUM CHLORIDE
     Indication: Medication dilution
     Dosage: 100 ML, QD, DILUTED WITH CYCLOPHOSPHAMIDE 800 MG
     Route: 041
     Dates: start: 20220915, end: 20220915
  3. SODIUM CHLORIDE [Suspect]
     Active Substance: SODIUM CHLORIDE
     Dosage: 100 ML, QD, DILUTED WITH EPIRUBICIN HYDROCHLORIDE 100 MG
     Route: 041
     Dates: start: 20220914, end: 20220914
  4. EPIRUBICIN HYDROCHLORIDE [Suspect]
     Active Substance: EPIRUBICIN HYDROCHLORIDE
     Indication: Breast cancer female
     Dosage: 100 MG, QD, DILUTED WITH 0.9% SODIUM CHLORIDE INJECTION 100 ML
     Route: 041
     Dates: start: 20220914, end: 20220914

REACTIONS (1)
  - White blood cell count decreased [Unknown]

NARRATIVE: CASE EVENT DATE: 20220917
